FAERS Safety Report 10040851 (Version 1)
Quarter: 2014Q1

REPORT INFORMATION
  Report Type: Spontaneous
  Country: US (occurrence: None)
  Receive Date: 20140326
  Receipt Date: 20140326
  Transmission Date: 20141002
  Serious: Yes (Hospitalization, Disabling)
  Sender: FDA-Public Use
  Company Number: None

PATIENT
  Age: 49 Year
  Sex: Male
  Weight: 81.65 kg

DRUGS (1)
  1. DEPO-MEDROL PFIZER [Suspect]

REACTIONS (3)
  - Meningitis [None]
  - Spinal cord injury [None]
  - Pain [None]
